FAERS Safety Report 7492524-8 (Version None)
Quarter: 2011Q2

REPORT INFORMATION
  Report Type: 
  Country: None (occurrence: None)
  Receive Date: 20110519
  Receipt Date: 20110517
  Transmission Date: 20111010
  Serious: Yes (Hospitalization)
  Sender: FDA-Public Use
  Company Number: IT-PFIZER INC-2011102802

PATIENT
  Age: 42 Year
  Sex: Male

DRUGS (3)
  1. VARENICLINE TARTRATE [Suspect]
     Indication: SMOKING CESSATION THERAPY
     Dosage: 0.5 MG, 2X/DAY
     Route: 048
     Dates: start: 20110322, end: 20110324
  2. VARENICLINE TARTRATE [Suspect]
     Dosage: 1 MG, 1X/DAY
     Route: 048
     Dates: start: 20110325, end: 20110328
  3. VARENICLINE TARTRATE [Suspect]
     Dosage: 2 MG, 1X/DAY
     Route: 048
     Dates: start: 20110329, end: 20110417

REACTIONS (2)
  - DUODENAL ULCER PERFORATION [None]
  - PERITONITIS [None]
